FAERS Safety Report 4446223-7 (Version None)
Quarter: 2004Q3

REPORT INFORMATION
  Report Type: 
  Country: None (occurrence: None)
  Receive Date: 20040902
  Receipt Date: 20040524
  Transmission Date: 20050211
  Serious: Yes (Hospitalization)
  Sender: FDA-Public Use
  Company Number: MK200406-0025-1

PATIENT
  Age: 67 Year
  Sex: Male

DRUGS (1)
  1. HEXABRIX [Suspect]
     Indication: ANGIOGRAM CEREBRAL
     Dosage: SINGLE USE

REACTIONS (3)
  - ANGLE CLOSURE GLAUCOMA [None]
  - BLINDNESS UNILATERAL [None]
  - EYE PAIN [None]
